FAERS Safety Report 7649780-2 (Version None)
Quarter: 2011Q3

REPORT INFORMATION
  Report Type: 
  Country: None (occurrence: None)
  Receive Date: 20110727
  Receipt Date: 20110711
  Transmission Date: 20111222
  Serious: Yes (Other)
  Sender: FDA-Public Use
  Company Number: JPI-P-015856

PATIENT
  Age: 32 Year
  Sex: Female
  Weight: 68.0396 kg

DRUGS (7)
  1. BIRTH CONTROL PILLS [Concomitant]
  2. THYROID DRUG (500 MILLIGRAM/MILLILITERS, SOLUTION) [Concomitant]
  3. DULOXETINE HYDROCHLORIDE [Concomitant]
  4. XYREM [Suspect]
     Indication: SLEEP PHASE RHYTHM DISTURBANCE
     Dosage: 5 GM (2.5 GM,2 IN 1 D),ORAL ; 5 GM (2.5 GM,2 IN 1 D),ORAL
     Route: 048
     Dates: start: 20100112, end: 20100101
  5. XYREM [Suspect]
     Indication: SOMNOLENCE
     Dosage: 5 GM (2.5 GM,2 IN 1 D),ORAL ; 5 GM (2.5 GM,2 IN 1 D),ORAL
     Route: 048
     Dates: start: 20100112, end: 20100101
  6. XYREM [Suspect]
     Indication: SLEEP PHASE RHYTHM DISTURBANCE
     Dosage: 5 GM (2.5 GM,2 IN 1 D),ORAL ; 5 GM (2.5 GM,2 IN 1 D),ORAL
     Route: 048
     Dates: start: 20100101, end: 20100101
  7. XYREM [Suspect]
     Indication: SOMNOLENCE
     Dosage: 5 GM (2.5 GM,2 IN 1 D),ORAL ; 5 GM (2.5 GM,2 IN 1 D),ORAL
     Route: 048
     Dates: start: 20100101, end: 20100101

REACTIONS (5)
  - JAW DISORDER [None]
  - SPEECH DISORDER [None]
  - DYSTONIA [None]
  - TREMOR [None]
  - DYSKINESIA [None]
